FAERS Safety Report 7901517 (Version 3)
Quarter: 2012Q4

REPORT INFORMATION
  Report Type: 
  Country: US (occurrence: US)
  Receive Date: 20110415
  Receipt Date: 20120917
  Transmission Date: 20130627
  Serious: No
  Sender: FDA-Public Use
  Company Number: US-BAYER-2011-029814

PATIENT
  Age: 24 Year
  Sex: Female
  Weight: 40.36 kg

DRUGS (1)
  1. MIRENA [Suspect]
     Indication: CONTRACEPTION
     Dosage: 20 ?g, CONT
     Route: 015
     Dates: start: 20090731, end: 20110305

REACTIONS (4)
  - Pregnancy with contraceptive device [Recovered/Resolved]
  - Device expulsion [None]
  - Device dislocation [None]
  - Vaginal haemorrhage [None]
